FAERS Safety Report 15975136 (Version 5)
Quarter: 2019Q4

REPORT INFORMATION
  Report Type: Spontaneous
  Country: US (occurrence: US)
  Receive Date: 20190218
  Receipt Date: 20191030
  Transmission Date: 20200122
  Serious: No
  Sender: FDA-Public Use
  Company Number: US-PFIZER INC-2019064347

PATIENT
  Age: 52 Year
  Sex: Female
  Weight: 86 kg

DRUGS (4)
  1. XELJANZ XR [Suspect]
     Active Substance: TOFACITINIB CITRATE
     Dosage: 11 MG, UNK
     Dates: start: 20190701
  2. XELJANZ XR [Suspect]
     Active Substance: TOFACITINIB CITRATE
     Dosage: 11 MG, UNK
     Dates: start: 20190326
  3. XELJANZ XR [Suspect]
     Active Substance: TOFACITINIB CITRATE
     Indication: RHEUMATOID ARTHRITIS
     Dosage: 11 MG, DAILY
     Route: 048
     Dates: start: 201812
  4. XELJANZ XR [Suspect]
     Active Substance: TOFACITINIB CITRATE
     Dosage: 11 MG, DAILY
     Route: 048
     Dates: start: 20190322

REACTIONS (7)
  - Product dose omission [Unknown]
  - Nasopharyngitis [Recovered/Resolved]
  - Condition aggravated [Unknown]
  - Upper respiratory tract infection [Unknown]
  - Alopecia [Unknown]
  - Mobility decreased [Unknown]
  - Rash [Unknown]

NARRATIVE: CASE EVENT DATE: 20190204
